FAERS Safety Report 18732649 (Version 1)
Quarter: 2021Q1

REPORT INFORMATION
  Report Type: Spontaneous
  Country: JP (occurrence: JP)
  Receive Date: 20210112
  Receipt Date: 20210112
  Transmission Date: 20210419
  Serious: Yes (Other)
  Sender: FDA-Public Use
  Company Number: JP-GILEAD-2021-0511721

PATIENT
  Age: 92 Year
  Sex: Female

DRUGS (16)
  1. SELBEX [Concomitant]
     Active Substance: TEPRENONE
     Dosage: 0.5 G, BID
     Route: 048
  2. LAC?B [Concomitant]
     Active Substance: BIFIDOBACTERIUM SPP.
     Dosage: 1 G, TID
     Route: 048
  3. DONEPEZIL HYDROCHLORIDE. [Concomitant]
     Active Substance: DONEPEZIL HYDROCHLORIDE
     Dosage: 5 MG, QD
     Route: 048
  4. INSULIN GLARGINE [Concomitant]
     Active Substance: INSULIN GLARGINE
     Dosage: 8 IU, QD
     Dates: start: 20210104
  5. NOVOLIN R [Concomitant]
     Active Substance: INSULIN HUMAN
     Dosage: UNK
     Dates: start: 20210103
  6. VEEN D [Concomitant]
     Active Substance: CALCIUM CHLORIDE\DEXTROSE\POTASSIUM CHLORIDE\SODIUM ACETATE\SODIUM CHLORIDE
     Dosage: 500 ML, TID
     Dates: start: 20210103, end: 20210103
  7. FAMOTIDINE. [Concomitant]
     Active Substance: FAMOTIDINE
     Dosage: 10 MG, BID
     Route: 048
  8. DECADRON [Concomitant]
     Active Substance: DEXAMETHASONE
     Dosage: 6 MG, QD
     Route: 048
     Dates: start: 20210102
  9. ELDECALCITOL [Concomitant]
     Active Substance: ELDECALCITOL
     Dosage: 0.75 UG, QD
     Route: 048
  10. AIMIX [Concomitant]
     Active Substance: AMLODIPINE BESYLATE\IRBESARTAN
     Dosage: 1 DOSAGE FORM, QD
     Route: 048
  11. OLMETEC [Concomitant]
     Active Substance: OLMESARTAN MEDOXOMIL
     Dosage: 20 MG, QD
     Route: 048
  12. HEPARIN CALCIUM [Concomitant]
     Active Substance: HEPARIN CALCIUM
     Dosage: 5000 IU, BID
     Route: 058
     Dates: start: 20210102
  13. RECOMODULIN [Concomitant]
     Active Substance: THROMBOMODULIN ALFA
     Dosage: 19200 IU, ONCE
     Route: 041
     Dates: start: 20210102, end: 20210102
  14. INSULIN GLARGINE [Concomitant]
     Active Substance: INSULIN GLARGINE
     Dosage: 4 IU, QD
     Dates: start: 20210103, end: 20210103
  15. VEKLURY [Suspect]
     Active Substance: REMDESIVIR
     Indication: COVID-19
     Dosage: 200 MG, QD
     Route: 042
     Dates: start: 20210102, end: 20210102
  16. VEKLURY [Suspect]
     Active Substance: REMDESIVIR
     Dosage: 100 MG, QD
     Route: 042
     Dates: start: 20210103, end: 20210105

REACTIONS (2)
  - Aspartate aminotransferase increased [Unknown]
  - Alanine aminotransferase increased [Unknown]

NARRATIVE: CASE EVENT DATE: 20210105
